FAERS Safety Report 9419811 (Version 1)
Quarter: 2013Q3

REPORT INFORMATION
  Report Type: Spontaneous
  Country: US (occurrence: US)
  Receive Date: 20130725
  Receipt Date: 20130725
  Transmission Date: 20140515
  Serious: Yes (Hospitalization)
  Sender: FDA-Public Use
  Company Number: US-MYLANLABS-2013S1015803

PATIENT
  Age: 62 Year
  Sex: Male

DRUGS (13)
  1. CLOZAPINE [Suspect]
     Indication: SCHIZOAFFECTIVE DISORDER
     Route: 065
  2. MIRTAZAPINE [Interacting]
     Indication: SCHIZOAFFECTIVE DISORDER
     Route: 065
  3. PARACETAMOL [Concomitant]
     Route: 065
  4. SALBUTAMOL [Concomitant]
     Route: 065
  5. ATENOLOL [Concomitant]
     Route: 065
  6. BENZATROPINE [Concomitant]
     Route: 065
  7. BUDESONIDE [Concomitant]
     Route: 065
  8. FERROUS SULFATE [Concomitant]
     Route: 065
  9. GEMFIBROZIL [Concomitant]
     Route: 065
  10. GLIPIZIDE [Concomitant]
     Route: 065
  11. LORAZEPAM [Concomitant]
     Route: 065
  12. METFORMIN [Concomitant]
     Route: 065
  13. OXYBUTYNIN [Concomitant]
     Route: 065

REACTIONS (7)
  - Confusional state [Unknown]
  - Agitation [Unknown]
  - Aggression [Unknown]
  - Catatonia [Unknown]
  - Hallucination, auditory [Unknown]
  - Toxicity to various agents [Recovered/Resolved]
  - Drug interaction [Unknown]
